FAERS Safety Report 9772459 (Version 1)
Quarter: 2013Q4

REPORT INFORMATION
  Report Type: Spontaneous
  Country: US (occurrence: US)
  Receive Date: 20131219
  Receipt Date: 20131219
  Transmission Date: 20140711
  Serious: Yes (Death, Other)
  Sender: FDA-Public Use
  Company Number: US-CELGENEUS-163-21880-13123079

PATIENT
  Age: 57 Year
  Sex: Male

DRUGS (3)
  1. REVLIMID [Suspect]
     Indication: PLASMA CELL MYELOMA
     Dosage: 15 MILLIGRAM
     Route: 048
     Dates: start: 201211
  2. REVLIMID [Suspect]
     Dosage: 20 MILLIGRAM
     Route: 048
     Dates: start: 20130118
  3. REVLIMID [Suspect]
     Dosage: 10MG-20MG
     Route: 048
     Dates: start: 201306, end: 20131212

REACTIONS (4)
  - Death [Fatal]
  - Meningitis [Unknown]
  - Pneumonia [Unknown]
  - Viral infection [Unknown]
